FAERS Safety Report 10432290 (Version 1)
Quarter: 2014Q3

REPORT INFORMATION
  Report Type: Spontaneous
  Country: US (occurrence: None)
  Receive Date: 20140903
  Receipt Date: 20140903
  Transmission Date: 20150326
  Serious: No
  Sender: FDA-Public Use
  Company Number: None

PATIENT
  Age: 59 Year
  Sex: Female
  Weight: 71 kg

DRUGS (3)
  1. BEVACIZUMAB (RHUMAB VEGF) (704865) [Suspect]
     Active Substance: BEVACIZUMAB
  2. CARBOPLATIN. [Suspect]
     Active Substance: CARBOPLATIN
  3. TAXOL [Suspect]
     Active Substance: PACLITAXEL

REACTIONS (2)
  - Malignant neoplasm progression [None]
  - Lung cancer metastatic [None]

NARRATIVE: CASE EVENT DATE: 20140223
